FAERS Safety Report 14934192 (Version 1)
Quarter: 2018Q2

REPORT INFORMATION
  Report Type: Spontaneous
  Country: US (occurrence: US)
  Receive Date: 20180524
  Receipt Date: 20180524
  Transmission Date: 20180711
  Serious: Yes (Hospitalization)
  Sender: FDA-Public Use
  Company Number: US-ELI_LILLY_AND_COMPANY-US201805009264

PATIENT
  Age: 60 Year
  Sex: Female
  Weight: 123 kg

DRUGS (2)
  1. INVOKANA [Concomitant]
     Active Substance: CANAGLIFLOZIN
     Dosage: UNK, UNKNOWN
     Route: 065
     Dates: start: 20170605
  2. CYMBALTA [Suspect]
     Active Substance: DULOXETINE HYDROCHLORIDE
     Indication: DYSPNOEA
     Dosage: UNK, UNKNOWN
     Route: 065
     Dates: start: 20180219

REACTIONS (6)
  - Musculoskeletal pain [Unknown]
  - Fatigue [Unknown]
  - Chest pain [Unknown]
  - Fall [Unknown]
  - Off label use [Unknown]
  - Asthenia [Not Recovered/Not Resolved]

NARRATIVE: CASE EVENT DATE: 20180219
